FAERS Safety Report 26101476 (Version 1)
Quarter: 2025Q4

REPORT INFORMATION
  Report Type: Spontaneous
  Country: CH (occurrence: CH)
  Receive Date: 20251128
  Receipt Date: 20251128
  Transmission Date: 20260118
  Serious: Yes (Other)
  Sender: MERCK SHARP & DOHME LLC
  Company Number: CH-009507513-2352422

PATIENT
  Sex: Female

DRUGS (3)
  1. KEYTRUDA [Suspect]
     Active Substance: PEMBROLIZUMAB
     Indication: Cervix cancer metastatic
     Dates: start: 2017
  2. CARBOPLATIN [Suspect]
     Active Substance: CARBOPLATIN
     Indication: Cervix cancer metastatic
  3. TAXOL [Suspect]
     Active Substance: PACLITAXEL
     Indication: Cervix carcinoma

REACTIONS (2)
  - Neuropathy peripheral [Unknown]
  - Off label use [Unknown]

NARRATIVE: CASE EVENT DATE: 20170101
